FAERS Safety Report 8258610-X (Version None)
Quarter: 2012Q2

REPORT INFORMATION
  Report Type: 
  Country: None (occurrence: None)
  Receive Date: 20120403
  Receipt Date: 20120403
  Transmission Date: 20120825
  Serious: Yes (Death)
  Sender: FDA-Public Use
  Company Number: None

PATIENT
  Age: 63 Year
  Sex: Female

DRUGS (10)
  1. ASPIRIN [Concomitant]
  2. ATENOLOL [Concomitant]
  3. HYDROCHLOROTHIAZIDE [Concomitant]
  4. SIMVASTATIN [Concomitant]
  5. OXYCODONE HCL [Concomitant]
  6. OMEPRAZOLE [Concomitant]
  7. REVLIMID [Suspect]
     Indication: MULTIPLE MYELOMA
     Dosage: REVLIMID 10MG DAILY 7D ON/7D OFF ORALLY
     Route: 048
     Dates: start: 20080501, end: 20111201
  8. LISINOPRIL [Concomitant]
  9. NORTRIPTYLINE HCL [Concomitant]
  10. FLUOXETINE [Concomitant]

REACTIONS (4)
  - PNEUMONIA [None]
  - MENTAL DISORDER [None]
  - FEELING ABNORMAL [None]
  - RESPIRATORY FAILURE [None]
